FAERS Safety Report 25869701 (Version 2)
Quarter: 2025Q4

REPORT INFORMATION
  Report Type: Spontaneous
  Country: JP (occurrence: JP)
  Receive Date: 20251001
  Receipt Date: 20251028
  Transmission Date: 20260118
  Serious: Yes (Hospitalization, Other)
  Sender: PIERRE FABRE MEDICAMENT
  Company Number: JP-maruho-EVC202500396PFM

PATIENT
  Age: 11 Month

DRUGS (2)
  1. PROPRANOLOL HYDROCHLORIDE [Suspect]
     Active Substance: PROPRANOLOL HYDROCHLORIDE
     Indication: Supraventricular tachycardia
     Dosage: NOT REPORTED
     Route: 065
  2. PILSICAINIDE HYDROCHLORIDE HEMIHYDRATE [Concomitant]
     Active Substance: PILSICAINIDE HYDROCHLORIDE HEMIHYDRATE
     Indication: Supraventricular tachycardia
     Dosage: NOT REPORTED
     Route: 065

REACTIONS (7)
  - Cardiac failure [Recovering/Resolving]
  - Supraventricular tachycardia [Recovered/Resolved]
  - Poor feeding infant [Unknown]
  - Bradycardia [Unknown]
  - Off label use [Unknown]
  - Product administered to patient of inappropriate age [Unknown]
  - Off label use [Unknown]
